FAERS Safety Report 7202099-6 (Version None)
Quarter: 2010Q4

REPORT INFORMATION
  Report Type: 
  Country: None (occurrence: None)
  Receive Date: 20101229
  Receipt Date: 20101221
  Transmission Date: 20110411
  Serious: Yes (Death, Hospitalization)
  Sender: FDA-Public Use
  Company Number: JP-ASTRAZENECA-2010SE58311

PATIENT
  Age: 30607 Day
  Sex: Male
  Weight: 47 kg

DRUGS (4)
  1. MEROPENEM [Suspect]
     Route: 041
     Dates: start: 20101113, end: 20101122
  2. OMEPRAL [Suspect]
     Indication: GASTRIC ULCER
     Route: 041
     Dates: start: 20101115, end: 20101118
  3. FUNGUARD [Suspect]
     Route: 041
     Dates: start: 20101108, end: 20101122
  4. ALBUMIN (HUMAN) [Concomitant]
     Route: 041
     Dates: start: 20101115, end: 20101119

REACTIONS (8)
  - ALANINE AMINOTRANSFERASE INCREASED [None]
  - ASPARTATE AMINOTRANSFERASE INCREASED [None]
  - BLOOD ALKALINE PHOSPHATASE INCREASED [None]
  - BLOOD BILIRUBIN INCREASED [None]
  - BLOOD LACTATE DEHYDROGENASE INCREASED [None]
  - DEATH [None]
  - GAMMA-GLUTAMYLTRANSFERASE INCREASED [None]
  - LIVER DISORDER [None]
